FAERS Safety Report 6198660-0 (Version None)
Quarter: 2009Q2

REPORT INFORMATION
  Report Type: 
  Country: None (occurrence: None)
  Receive Date: 20090521
  Receipt Date: 20090513
  Transmission Date: 20091009
  Serious: Yes (Hospitalization, Other)
  Sender: FDA-Public Use
  Company Number: US-BAXTER-2009BH006355

PATIENT
  Age: 48 Year
  Sex: Female

DRUGS (36)
  1. DIANEAL [Suspect]
     Indication: PERITONEAL DIALYSIS
     Route: 033
     Dates: start: 20081101
  2. DIANEAL [Suspect]
     Indication: PERITONEAL DIALYSIS
     Route: 033
  3. CALCITRIOL [Concomitant]
     Indication: HYPOCALCAEMIA
     Route: 048
  4. CALCIUM CARBONATE [Concomitant]
     Indication: HYPOCALCAEMIA
     Route: 048
  5. NORVASC [Concomitant]
     Indication: HYPERTENSION
     Route: 048
  6. CALCITRIOL [Concomitant]
     Route: 048
  7. CALCIUM ACETATE [Concomitant]
     Indication: HYPOCALCAEMIA
     Route: 048
  8. CALCIUM CARBONATE W/VITAMIN D NOS [Concomitant]
     Indication: HYPOCALCAEMIA
     Route: 048
  9. COREG [Concomitant]
     Indication: HYPERTENSION
     Route: 048
  10. CLONIDINE [Concomitant]
     Indication: HYPERTENSION
     Route: 048
  11. ARANESP [Concomitant]
     Indication: ANAEMIA
     Route: 058
  12. COLACE [Concomitant]
     Indication: CONSTIPATION
     Route: 048
  13. VITAMIN D [Concomitant]
     Indication: DRUG USE FOR UNKNOWN INDICATION
     Route: 048
  14. FENTANYL [Concomitant]
     Indication: PAIN
     Route: 062
  15. PROZAC [Concomitant]
     Indication: DEPRESSION
     Route: 048
  16. DILAUDID [Concomitant]
     Indication: PAIN
     Route: 048
  17. KEPPRA [Concomitant]
     Indication: DRUG USE FOR UNKNOWN INDICATION
     Route: 048
  18. SYNTHROID [Concomitant]
     Indication: DRUG USE FOR UNKNOWN INDICATION
     Route: 048
  19. MAGNESIUM OXIDE [Concomitant]
     Indication: LABORATORY TEST
     Route: 048
  20. LOPRESSOR [Concomitant]
     Indication: HYPERTENSION
     Route: 048
  21. PRILOSEC [Concomitant]
     Indication: DYSPEPSIA
     Route: 048
  22. RENAGEL [Concomitant]
     Indication: RENAL DISORDER
     Route: 048
  23. BACTRIM DS [Concomitant]
     Indication: INFECTION
     Route: 048
  24. EFFEXOR [Concomitant]
     Indication: DEPRESSION
     Route: 048
  25. MINOCYCLINE HCL [Concomitant]
     Indication: INFECTION
     Route: 048
  26. CEFEPIME [Concomitant]
     Indication: INFECTION
     Route: 042
  27. PRIMAXIN [Concomitant]
     Indication: INFECTION
     Route: 042
  28. TOBRAMYCIN [Concomitant]
     Indication: INFECTION
     Route: 042
  29. XANAX [Concomitant]
     Indication: ANXIETY
     Route: 048
  30. DULCOLAX [Concomitant]
     Indication: CONSTIPATION
     Route: 048
  31. FENTANYL [Concomitant]
     Route: 048
  32. DILAUDID [Concomitant]
     Route: 048
  33. ZOFRAN [Concomitant]
     Indication: NAUSEA
     Route: 042
  34. PHENERGAN [Concomitant]
     Indication: NAUSEA
     Route: 042
  35. AMBIEN [Concomitant]
     Indication: INSOMNIA
     Route: 048
  36. TRAMADOL HCL [Concomitant]
     Indication: PAIN
     Route: 048

REACTIONS (7)
  - BLOOD CALCIUM DECREASED [None]
  - CALCIPHYLAXIS [None]
  - HAEMOGLOBIN DECREASED [None]
  - INFUSION SITE EXTRAVASATION [None]
  - MUSCLE SPASMS [None]
  - SKIN NECROSIS [None]
  - WOUND INFECTION [None]
